FAERS Safety Report 14967184 (Version 1)
Quarter: 2018Q2

REPORT INFORMATION
  Report Type: Spontaneous
  Country: JP (occurrence: JP)
  Receive Date: 20180604
  Receipt Date: 20180604
  Transmission Date: 20180711
  Serious: Yes (Other)
  Sender: FDA-Public Use
  Company Number: JP-CHEPLA-C20180166

PATIENT
  Age: 42 Year
  Sex: Male

DRUGS (4)
  1. ALL-TRANS RETINOIC ACID (ATRA) [Suspect]
     Active Substance: TRETINOIN
     Indication: ACUTE PROMYELOCYTIC LEUKAEMIA
     Dosage: CONSOLIDATION THERAPY WITH ARSENIC TRIOXIDE+ATRA
  2. ALL-TRANS RETINOIC ACID (ATRA) [Suspect]
     Active Substance: TRETINOIN
     Indication: ACUTE PROMYELOCYTIC LEUKAEMIA
     Dosage: REMISSION-INDUCTION THERAPY WITH SINGLE ADMINISTRATION OF ATRA
  3. ARSENIC TRIOXIDE [Suspect]
     Active Substance: ARSENIC TRIOXIDE
     Dosage: 2 COURSES OF CONSOLIDATION THERAPY WITH ARSENIC TRIOXIDE+ATRA
  4. WARFARIN [Suspect]
     Active Substance: WARFARIN
     Indication: ANTICOAGULANT THERAPY

REACTIONS (2)
  - Liver disorder [Unknown]
  - Acute promyelocytic leukaemia differentiation syndrome [Recovering/Resolving]
